FAERS Safety Report 5066180-2 (Version None)
Quarter: 2006Q3

REPORT INFORMATION
  Report Type: 
  Country: None (occurrence: None)
  Receive Date: 20060703
  Receipt Date: 20060324
  Transmission Date: 20061208
  Serious: Yes (Disabling)
  Sender: FDA-Public Use
  Company Number: WAES 0308USA00043

PATIENT
  Age: 83 Year
  Sex: Female

DRUGS (2)
  1. HYZAAR [Suspect]
     Indication: BLOOD PRESSURE
     Dosage: SEE IMAGE
     Route: 048
     Dates: start: 20030726
  2. COZAAR [Concomitant]

REACTIONS (2)
  - ASTHENIA [None]
  - OESOPHAGEAL SPASM [None]
